FAERS Safety Report 5395649-6 (Version None)
Quarter: 2007Q3

REPORT INFORMATION
  Report Type: 
  Country: None (occurrence: None)
  Receive Date: 20070724
  Receipt Date: 20070710
  Transmission Date: 20080115
  Serious: Yes (Hospitalization)
  Sender: FDA-Public Use
  Company Number: GB-ELI_LILLY_AND_COMPANY-GB200707002994

PATIENT
  Age: 63 Year
  Sex: Female
  Weight: 130 kg

DRUGS (6)
  1. TADALAFIL [Suspect]
     Indication: PULMONARY HYPERTENSION
     Dates: start: 20061222
  2. FUROSEMIDE [Concomitant]
     Indication: HYPERTENSION
     Dates: start: 19940422
  3. ENALAPRIL MALEATE [Concomitant]
     Indication: HYPERTENSION
     Dates: start: 20030311
  4. CETRIZINE [Concomitant]
     Indication: DEPRESSED MOOD
     Dates: start: 20050901
  5. PRAVASTATIN [Concomitant]
     Indication: PROPHYLAXIS
     Dates: start: 20070327
  6. WARFARIN SODIUM [Concomitant]
     Indication: PULMONARY HYPERTENSION
     Dates: start: 20060417

REACTIONS (2)
  - EPISTAXIS [None]
  - NASAL CONGESTION [None]
